FAERS Safety Report 9908378 (Version 1)
Quarter: 2014Q1

REPORT INFORMATION
  Report Type: Spontaneous
  Country: US (occurrence: US)
  Receive Date: 20140219
  Receipt Date: 20140219
  Transmission Date: 20141002
  Serious: Yes (Other)
  Sender: FDA-Public Use
  Company Number: US-GE HEALTHCARE MEDICAL DIAGNOSTICS-OSCN-PR-0808S-0502

PATIENT
  Age: 54 Year
  Sex: Male

DRUGS (5)
  1. OMNISCAN [Suspect]
     Indication: INTERVERTEBRAL DISC DEGENERATION
     Route: 042
     Dates: start: 20020217, end: 20020217
  2. OMNISCAN [Suspect]
     Route: 042
     Dates: start: 20021023, end: 20021023
  3. OMNISCAN [Suspect]
     Route: 042
     Dates: start: 20030407, end: 20030407
  4. OMNISCAN [Suspect]
     Route: 042
     Dates: start: 20030414, end: 20030414
  5. OMNISCAN [Suspect]
     Route: 042
     Dates: start: 20040312, end: 20040312

REACTIONS (1)
  - Nephrogenic systemic fibrosis [Not Recovered/Not Resolved]
